FAERS Safety Report 6515879-7 (Version None)
Quarter: 2009Q4

REPORT INFORMATION
  Report Type: 
  Country: None (occurrence: None)
  Receive Date: 20091223
  Receipt Date: 20091216
  Transmission Date: 20100525
  Serious: Yes (Other)
  Sender: FDA-Public Use
  Company Number: US-JNJFOC-20091205291

PATIENT

DRUGS (21)
  1. INFLIXIMAB [Suspect]
     Route: 042
  2. INFLIXIMAB [Suspect]
     Indication: RHEUMATOID ARTHRITIS
     Route: 042
  3. LASIX [Concomitant]
  4. EFFEXOR XR [Concomitant]
  5. HYDROCHLOROTHIAZIDE [Concomitant]
  6. PLAQUENIL [Concomitant]
  7. ACCUPRIL [Concomitant]
  8. ASPIRIN [Concomitant]
  9. CLARITIN [Concomitant]
  10. COMPAZINE [Concomitant]
  11. DETROL [Concomitant]
  12. FLEXERIL [Concomitant]
  13. FLONASE [Concomitant]
     Dosage: DOSE: 50 MCG
  14. FOLIC ACID [Concomitant]
  15. IMURAN [Concomitant]
  16. LOPRESSOR [Concomitant]
  17. MOBIC [Concomitant]
  18. MS CONTIN [Concomitant]
  19. PERCOCET [Concomitant]
     Dosage: DOSE: 5-325 MG TAB
  20. ALBUTEROL SULFATE AUTOHALER [Concomitant]
     Dosage: DOSE: 21 MCG
  21. TRAZODONE HCL [Concomitant]

REACTIONS (1)
  - MALIGNANT MELANOMA [None]
